FAERS Safety Report 16855919 (Version 1)
Quarter: 2019Q3

REPORT INFORMATION
  Report Type: Report from Study
  Country: JP (occurrence: JP)
  Receive Date: 20190926
  Receipt Date: 20190926
  Transmission Date: 20191005
  Serious: Yes (Death, Other)
  Sender: FDA-Public Use
  Company Number: JP-CELGENEUS-087-21880-11031479

PATIENT
  Age: 66 Year
  Sex: Male

DRUGS (4)
  1. LENADEX [Suspect]
     Active Substance: DEXAMETHASONE ACETATE
     Indication: 5Q MINUS SYNDROME
     Route: 048
  2. ZOVIRAX [Concomitant]
     Active Substance: ACYCLOVIR
     Indication: HERPES VIRUS INFECTION
     Route: 065
  3. REVLIMID [Suspect]
     Active Substance: LENALIDOMIDE
     Indication: 5Q MINUS SYNDROME
     Dosage: 10 MILLIGRAM
     Route: 048
     Dates: start: 20100901, end: 20101109
  4. ANTIBIOTIC [Concomitant]
     Active Substance: UNSPECIFIED INGREDIENT
     Indication: HERPES VIRUS INFECTION
     Route: 065

REACTIONS (13)
  - Diarrhoea [Unknown]
  - Influenza [Recovered/Resolved]
  - Blast cell count increased [Unknown]
  - Herpes virus infection [Unknown]
  - Immune thrombocytopenic purpura [Unknown]
  - Mandibular mass [Unknown]
  - Haematuria [Unknown]
  - Erythema [Unknown]
  - Anaemia [Unknown]
  - Melaena [Unknown]
  - Acute leukaemia [Fatal]
  - Blister [Unknown]
  - Haematochezia [Unknown]

NARRATIVE: CASE EVENT DATE: 20101217
